FAERS Safety Report 8809316 (Version 1)
Quarter: 2012Q4

REPORT INFORMATION
  Report Type: Spontaneous
  Country: US (occurrence: None)
  Receive Date: 20120924
  Receipt Date: 20120924
  Transmission Date: 20130627
  Serious: Yes (Death)
  Sender: FDA-Public Use
  Company Number: None

PATIENT
  Age: 27 Year
  Sex: Male
  Weight: 77.11 kg

DRUGS (2)
  1. ACCUTANE [Suspect]
     Indication: CYSTIC ACNE
     Dosage: 120 mg 3 months,  80 mg 3 months  2 times daily po
     Route: 048
     Dates: start: 20011001, end: 20020301
  2. AMNESTEEM [Suspect]
     Indication: CYSTIC ACNE
     Dosage: 80 mg and 40 mg every other day   2 times daily po
     Route: 048
     Dates: start: 20040901, end: 20050201

REACTIONS (15)
  - Somnolence [None]
  - Lethargy [None]
  - Mental disorder [None]
  - Completed suicide [None]
  - Skin fragility [None]
  - Arthralgia [None]
  - Dry skin [None]
  - Depression [None]
  - Abnormal behaviour [None]
  - Disturbance in attention [None]
  - Confusional state [None]
  - Amnesia [None]
  - Alopecia [None]
  - Somnolence [None]
  - Fatigue [None]
